FAERS Safety Report 4312991-8 (Version None)
Quarter: 2004Q1

REPORT INFORMATION
  Report Type: 
  Country: None (occurrence: None)
  Receive Date: 20040305
  Receipt Date: 20040305
  Transmission Date: 20041129
  Serious: Yes (Death)
  Sender: FDA-Public Use
  Company Number: None

PATIENT
  Sex: Male

DRUGS (1)
  1. IMITREX [Suspect]
     Dosage: ORAL
     Route: 048
     Dates: start: 20030913, end: 20030913

REACTIONS (2)
  - CARDIAC ARREST [None]
  - CONVULSION [None]
